FAERS Safety Report 25262927 (Version 1)
Quarter: 2025Q2

REPORT INFORMATION
  Report Type: Spontaneous
  Country: US (occurrence: None)
  Receive Date: 20250501
  Receipt Date: 20250501
  Transmission Date: 20250716
  Serious: No
  Sender: FDA-CTU
  Company Number: None

PATIENT
  Age: 48 Year
  Sex: Male

DRUGS (1)
  1. CISPLATIN [Suspect]
     Active Substance: CISPLATIN
     Indication: Small cell carcinoma
     Dates: start: 20240805

REACTIONS (8)
  - Leukopenia [None]
  - Syncope [None]
  - Vomiting [None]
  - Nausea [None]
  - White blood cell count decreased [None]
  - Cytopenia [None]
  - Chemotherapy [None]
  - Adverse drug reaction [None]

NARRATIVE: CASE EVENT DATE: 20240929
